FAERS Safety Report 9637198 (Version 1)
Quarter: 2013Q4

REPORT INFORMATION
  Report Type: Report from Study
  Country: US (occurrence: US)
  Receive Date: 20131022
  Receipt Date: 20131022
  Transmission Date: 20140711
  Serious: Yes (Other)
  Sender: FDA-Public Use
  Company Number: US-009507513-1310USA005744

PATIENT
  Age: 62 Year
  Sex: Female
  Weight: 63.49 kg

DRUGS (13)
  1. PRINIVIL [Suspect]
     Dosage: 10 MG, UNK
     Dates: end: 201309
  2. AMPYRA [Suspect]
     Indication: GAIT DISTURBANCE
     Dosage: 10 MG, Q12H
     Route: 048
     Dates: start: 20130805
  3. REBIF [Suspect]
     Dosage: 44 MICROGRAM, TIW
  4. SYNTHROID [Concomitant]
     Dosage: UNK
  5. VIVELLE-DOT [Concomitant]
     Dosage: UNK
  6. VIVELLE-DOT [Concomitant]
     Dosage: STRENGTH 0.01 MG
  7. CIMETIDINE [Concomitant]
     Dosage: 200 MG
  8. ERGOCALCIFEROL [Concomitant]
     Dosage: UNK
  9. ERGOCALCIFEROL [Concomitant]
     Dosage: 5000 IU
  10. VITAMINS (UNSPECIFIED) [Concomitant]
     Dosage: UNK
     Dates: end: 201309
  11. CLARITIN [Concomitant]
     Dosage: STRENGTH 10 MG
  12. RANITIDINE [Concomitant]
     Dosage: UNK, PRN
  13. PEPCID [Concomitant]
     Dosage: 10 MG

REACTIONS (12)
  - Vertigo [Recovering/Resolving]
  - Blood pressure decreased [Recovering/Resolving]
  - Lhermitte^s sign [Not Recovered/Not Resolved]
  - Dysgeusia [Not Recovered/Not Resolved]
  - Vomiting [Recovering/Resolving]
  - Influenza like illness [Recovering/Resolving]
  - Chills [Recovering/Resolving]
  - Feeling hot [Recovering/Resolving]
  - Hangover [Recovering/Resolving]
  - Cough [Unknown]
  - Decreased appetite [Unknown]
  - Nausea [Recovering/Resolving]
